FAERS Safety Report 25818542 (Version 1)
Quarter: 2025Q3

REPORT INFORMATION
  Report Type: Spontaneous
  Country: US (occurrence: US)
  Receive Date: 20250918
  Receipt Date: 20250918
  Transmission Date: 20251020
  Serious: Yes (Life-Threatening, Hospitalization, Other)
  Sender: DR REDDYS
  Company Number: US-DRL-USA-USA/2025/09/014186

PATIENT
  Age: 14 Year
  Sex: Female

DRUGS (1)
  1. CYCLOSPORINE [Suspect]
     Active Substance: CYCLOSPORINE
     Indication: Multisystem inflammatory syndrome in children

REACTIONS (3)
  - Brain oedema [Unknown]
  - Intracranial pressure increased [Unknown]
  - Product use in unapproved indication [Unknown]
